FAERS Safety Report 6078635-2 (Version None)
Quarter: 2009Q1

REPORT INFORMATION
  Report Type: 
  Country: None (occurrence: None)
  Receive Date: 20090215
  Receipt Date: 20090203
  Transmission Date: 20090719
  Serious: Yes (Death, Hospitalization, Other)
  Sender: FDA-Public Use
  Company Number: JP-PFIZER INC-2008064798

PATIENT

DRUGS (13)
  1. SUNITINIB MALATE [Suspect]
     Indication: GASTROINTESTINAL STROMAL TUMOUR
     Dosage: 50 MG, 1X/DAY
     Route: 048
     Dates: start: 20080704
  2. SUNITINIB MALATE [Suspect]
     Dosage: 37.5 MG, 1X/DAY
     Route: 048
     Dates: start: 20080925
  3. SUNITINIB MALATE [Suspect]
     Dosage: 25 MG, 1X/DAY
     Route: 048
     Dates: start: 20081128, end: 20081204
  4. LOXOPROFEN SODIUM [Concomitant]
     Dosage: 180 MG, 3X/DAY
     Route: 048
     Dates: end: 20090105
  5. MUCOSTA [Concomitant]
     Dosage: UNK
     Route: 048
  6. NOVAMIN [Concomitant]
     Route: 048
     Dates: end: 20080713
  7. OXYCONTIN [Concomitant]
     Dosage: 10 MG, 1X/DAY
     Route: 048
     Dates: end: 20080713
  8. MAGNESIUM OXIDE [Concomitant]
     Route: 048
     Dates: end: 20080715
  9. PURSENNID [Concomitant]
     Dosage: UNK
     Route: 048
     Dates: start: 20080710, end: 20081202
  10. FAMOTIDINE [Concomitant]
     Route: 048
     Dates: end: 20081016
  11. MORPHINE HYDROCHLORIDE [Concomitant]
     Route: 048
     Dates: start: 20080927, end: 20081005
  12. PENTAZOCINE LACTATE [Concomitant]
     Route: 042
     Dates: start: 20081010
  13. ADALAT CC [Concomitant]
     Dosage: UNK
     Route: 048
     Dates: end: 20090105

REACTIONS (5)
  - DEATH [None]
  - HEPATIC FAILURE [None]
  - HYPERAMYLASAEMIA [None]
  - LIPASE INCREASED [None]
  - PLATELET COUNT DECREASED [None]
